FAERS Safety Report 14814167 (Version 1)
Quarter: 2018Q2

REPORT INFORMATION
  Report Type: Spontaneous
  Country: IT (occurrence: IT)
  Receive Date: 20180426
  Receipt Date: 20180426
  Transmission Date: 20180711
  Serious: Yes (Other)
  Sender: FDA-Public Use
  Company Number: IT-TEVA-2018-IT-886067

PATIENT
  Age: 55 Year
  Sex: Female

DRUGS (1)
  1. LONQUEX 6 MG SOLUTION FOR INJECTION [Suspect]
     Active Substance: LIPEGFILGRASTIM
     Route: 058

REACTIONS (1)
  - Circulatory collapse [Recovered/Resolved]
